FAERS Safety Report 17631527 (Version 1)
Quarter: 2020Q2

REPORT INFORMATION
  Report Type: Spontaneous
  Country: JP (occurrence: JP)
  Receive Date: 20200406
  Receipt Date: 20200406
  Transmission Date: 20200713
  Serious: Yes (Other)
  Sender: FDA-Public Use
  Company Number: JP-HQ SPECIALTY-JP-2020INT000028

PATIENT

DRUGS (3)
  1. RADIOTHERAPY [Suspect]
     Active Substance: RADIATION THERAPY
     Indication: SMALL CELL LUNG CANCER LIMITED STAGE
     Dosage: STARTED DAY 1 OF 1ST CYCLE ETOPOSIDE-CISPLATIN AT 1.5 GY BID TO TOTAL DOSE OF 45 GY IN 3 WKS
     Route: 065
  2. CISPLATIN. [Suspect]
     Active Substance: CISPLATIN
     Indication: SMALL CELL LUNG CANCER LIMITED STAGE
     Dosage: 60 MG/M2, 1- 2-H INFUSION ON DAY 1, Q3-4 WEEKS
     Route: 042
  3. ETOPOSIDE. [Suspect]
     Active Substance: ETOPOSIDE
     Indication: SMALL CELL LUNG CANCER LIMITED STAGE
     Dosage: 100 MG/M2, 1-2-H INFUSION ON DAYS 1-3, Q3-4 WEEKS
     Route: 042

REACTIONS (1)
  - Oesophagitis [Unknown]
